FAERS Safety Report 5777049-X (Version None)
Quarter: 2008Q2

REPORT INFORMATION
  Report Type: 
  Country: None (occurrence: None)
  Receive Date: 20080616
  Receipt Date: 20080603
  Transmission Date: 20081010
  Serious: Yes (Disabling)
  Sender: FDA-Public Use
  Company Number: 2008AP000312

PATIENT
  Age: 45 Year
  Sex: Female

DRUGS (10)
  1. PAROXETINE HCL [Suspect]
     Indication: DEPRESSION
     Dosage: SEE IMAGE
     Route: 048
     Dates: start: 19990713
  2. PAROXETINE HCL [Suspect]
     Indication: DEPRESSION
     Dosage: SEE IMAGE
     Route: 048
     Dates: start: 19990713
  3. PAROXETINE HCL [Suspect]
     Indication: DEPRESSION
     Dosage: SEE IMAGE
     Route: 048
     Dates: start: 20000812
  4. PAROXETINE HCL [Suspect]
     Indication: DEPRESSION
     Dosage: SEE IMAGE
     Route: 048
     Dates: start: 20010918
  5. PAROXETINE HCL [Suspect]
     Indication: DEPRESSION
     Dosage: SEE IMAGE
     Route: 048
     Dates: start: 20010919
  6. PAROXETINE HCL [Suspect]
     Indication: DEPRESSION
     Dosage: SEE IMAGE
     Route: 048
     Dates: start: 20020208
  7. PAROXETINE HCL [Suspect]
     Indication: DEPRESSION
     Dosage: SEE IMAGE
     Route: 048
     Dates: start: 20040101
  8. PAROXETINE HCL [Suspect]
     Indication: DEPRESSION
     Dosage: SEE IMAGE
     Route: 048
     Dates: start: 20050512
  9. AMITRIPTLINE HCL [Concomitant]
  10. HERBAL PREPARATION (HERBAL PREPARATION) [Concomitant]

REACTIONS (27)
  - ABDOMINAL PAIN [None]
  - ABDOMINAL PAIN UPPER [None]
  - ABNORMAL BEHAVIOUR [None]
  - ANXIETY [None]
  - CONFUSIONAL STATE [None]
  - CONVERSION DISORDER [None]
  - CRYING [None]
  - DEPRESSION [None]
  - DISTURBANCE IN ATTENTION [None]
  - DIZZINESS [None]
  - DRUG DOSE OMISSION [None]
  - DRUG INEFFECTIVE [None]
  - FATIGUE [None]
  - FEELING COLD [None]
  - FEELING HOT [None]
  - GENITAL PAIN [None]
  - HYPERHIDROSIS [None]
  - INSOMNIA [None]
  - INTENTIONAL SELF-INJURY [None]
  - MALAISE [None]
  - NAUSEA [None]
  - NIGHTMARE [None]
  - PANIC ATTACK [None]
  - PARAESTHESIA [None]
  - PSYCHIATRIC SYMPTOM [None]
  - VULVOVAGINAL DISCOMFORT [None]
  - WITHDRAWAL SYNDROME [None]
